FAERS Safety Report 13872496 (Version 1)
Quarter: 2017Q3

REPORT INFORMATION
  Report Type: Spontaneous
  Country: US (occurrence: US)
  Receive Date: 20170816
  Receipt Date: 20170816
  Transmission Date: 20171127
  Serious: No
  Sender: FDA-Public Use
  Company Number: US-PFIZER INC-2017351695

PATIENT
  Sex: Female

DRUGS (1)
  1. METHOTREXATE SODIUM. [Suspect]
     Active Substance: METHOTREXATE SODIUM
     Dosage: 2.5 MG, UNK

REACTIONS (6)
  - Antinuclear antibody positive [Unknown]
  - Arthralgia [Unknown]
  - Hypertension [Unknown]
  - Red blood cell sedimentation rate increased [Unknown]
  - Exostosis [Unknown]
  - Osteoarthritis [Unknown]
